FAERS Safety Report 25787898 (Version 1)
Quarter: 2025Q3

REPORT INFORMATION
  Report Type: Spontaneous
  Country: JP (occurrence: JP)
  Receive Date: 20250910
  Receipt Date: 20250910
  Transmission Date: 20251020
  Serious: Yes (Other)
  Sender: EISAI
  Company Number: JP-Eisai-202506813_LEN-EC_P_1

PATIENT
  Age: 78 Year
  Sex: Female
  Weight: 40 kg

DRUGS (8)
  1. LENVIMA [Suspect]
     Active Substance: LENVATINIB
     Indication: Endometrial cancer
     Dosage: AFTER BREAKFAST?REPEATEDLY SUSPENDING AND RESTARTING MEDICATION PARTWAY THROUGH
     Route: 048
     Dates: start: 20240926, end: 2024
  2. LENVIMA [Suspect]
     Active Substance: LENVATINIB
     Dosage: AFTER BREAKFAST?REPEATEDLY SUSPENDING AND RESTARTING MEDICATION PARTWAY THROUGH
     Route: 048
     Dates: start: 20250220, end: 20250322
  3. LENVIMA [Suspect]
     Active Substance: LENVATINIB
     Dosage: AFTER BREAKFAST?REPEATEDLY SUSPENDING AND RESTARTING MEDICATION PARTWAY THROUGH
     Route: 048
     Dates: start: 20250512, end: 20250610
  4. LENVIMA [Suspect]
     Active Substance: LENVATINIB
     Dosage: AFTER BREAKFAST?REPEATEDLY SUSPENDING AND RESTARTING MEDICATION PARTWAY THROUGH
     Route: 048
     Dates: start: 2024, end: 20241209
  5. KEYTRUDA [Suspect]
     Active Substance: PEMBROLIZUMAB
     Indication: Endometrial cancer
     Route: 041
     Dates: start: 20240926, end: 20241209
  6. KEYTRUDA [Suspect]
     Active Substance: PEMBROLIZUMAB
     Route: 041
     Dates: start: 20250220, end: 20250609
  7. METHYLCOBALAMIN [Concomitant]
     Active Substance: METHYLCOBALAMIN
     Indication: Product used for unknown indication
     Dosage: AFTER A MEAL THREE TIMES A DAY
     Dates: start: 20250203
  8. ADETPHOS [Concomitant]
     Active Substance: ADENOSINE TRIPHOSPHATE
     Indication: Product used for unknown indication
     Dosage: AFTER A MEAL THREE TIMES A DAY
     Dates: start: 20250203

REACTIONS (4)
  - Interstitial lung disease [Unknown]
  - Platelet count decreased [Unknown]
  - Blood creatinine increased [Unknown]
  - Blood thyroid stimulating hormone increased [Unknown]

NARRATIVE: CASE EVENT DATE: 20240101
